FAERS Safety Report 9147258 (Version 4)
Quarter: 2013Q2

REPORT INFORMATION
  Report Type: Spontaneous
  Country: US (occurrence: US)
  Receive Date: 20130307
  Receipt Date: 20130603
  Transmission Date: 20140414
  Serious: No
  Sender: FDA-Public Use
  Company Number: US-009507513-1303USA002858

PATIENT
  Age: 55 Year
  Sex: Female
  Weight: 103.4 kg

DRUGS (4)
  1. PEGINTRON [Suspect]
     Indication: HEPATITIS C
     Dosage: VIAL
     Dates: start: 20130304, end: 20130422
  2. REBETOL [Suspect]
     Indication: HEPATITIS C
     Dosage: UNK
     Route: 048
     Dates: start: 20130304
  3. VICTRELIS [Suspect]
     Indication: HEPATITIS C
     Dosage: UNK
     Route: 048
     Dates: start: 20130401
  4. PEGASYS [Suspect]
     Indication: HEPATITIS C
     Dosage: UNK
     Dates: start: 20130429

REACTIONS (24)
  - Dry eye [Unknown]
  - Vomiting [Unknown]
  - Insomnia [Unknown]
  - Back pain [Unknown]
  - Dyspepsia [Unknown]
  - Alopecia [Unknown]
  - Dyspepsia [Unknown]
  - Vomiting [Unknown]
  - Dysgeusia [Unknown]
  - Weight decreased [Unknown]
  - Alopecia [Unknown]
  - Thrombocytopenia [Unknown]
  - Platelet count decreased [Unknown]
  - Thrombocytopenia [Unknown]
  - Platelet count decreased [Unknown]
  - Asthenia [Unknown]
  - Myalgia [Unknown]
  - Hypotension [Unknown]
  - Weight decreased [Unknown]
  - Dry mouth [Unknown]
  - Oral discomfort [Unknown]
  - Decreased appetite [Unknown]
  - Platelet count decreased [Unknown]
  - Dysgeusia [Unknown]
